FAERS Safety Report 5802427-X (Version None)
Quarter: 2008Q3

REPORT INFORMATION
  Report Type: 
  Country: None (occurrence: None)
  Receive Date: 20080708
  Receipt Date: 20080627
  Transmission Date: 20090109
  Serious: Yes (Hospitalization, Other)
  Sender: FDA-Public Use
  Company Number: US-BAYER-200811198BCC

PATIENT
  Age: 50 Year
  Sex: Female
  Weight: 91 kg

DRUGS (6)
  1. ASPIRIN [Suspect]
     Indication: ANALGESIA
     Dosage: TOTAL DAILY DOSE: 325 MG  UNIT DOSE: 325 MG
     Route: 048
     Dates: start: 20030101
  2. ASPIRIN [Suspect]
     Route: 048
  3. BAYER EXTRA STRENGTH BACK + BODY [Suspect]
     Indication: BACK PAIN
     Route: 048
     Dates: start: 20031001
  4. GLIPIZIDE [Concomitant]
  5. HIGH BLOOD PRESSURE MEDICATION [Concomitant]
  6. HIGH CHOLESTEROL MEDICATION [Concomitant]

REACTIONS (7)
  - CEREBROVASCULAR ACCIDENT [None]
  - DIABETES MELLITUS [None]
  - DIZZINESS [None]
  - DYSPNOEA [None]
  - FATIGUE [None]
  - PARAESTHESIA [None]
  - POOR PERIPHERAL CIRCULATION [None]
